FAERS Safety Report 4385722-3 (Version None)
Quarter: 2004Q2

REPORT INFORMATION
  Report Type: 
  Country: None (occurrence: None)
  Receive Date: 20040623
  Receipt Date: 20040611
  Transmission Date: 20050107
  Serious: Yes (Hospitalization)
  Sender: FDA-Public Use
  Company Number: 6009038

PATIENT
  Age: 71 Year
  Sex: Male

DRUGS (7)
  1. BISOPROLOL (CHF) (TABLETS) (BISOPROLOL) [Suspect]
     Indication: CARDIAC FAILURE CONGESTIVE
     Dosage: 1.25 MG
     Route: 048
     Dates: start: 20031118
  2. ENALAPRIL 10 MG TABLETS (ENALAPRIL) [Suspect]
     Indication: CARDIAC FAILURE CONGESTIVE
     Dosage: 20 MG (10 MG)
     Route: 048
     Dates: start: 20030517
  3. DIGITOXIN TAB [Concomitant]
  4. SEDACORONE (AMIODARONE) [Concomitant]
  5. LASIX [Concomitant]
  6. ACETYLSALICYLIC ACID SRT [Concomitant]
  7. ALLOPURINOL [Concomitant]

REACTIONS (6)
  - CIRCULATORY COLLAPSE [None]
  - HAEMATOCHEZIA [None]
  - HAEMATOCRIT DECREASED [None]
  - HAEMOGLOBIN DECREASED [None]
  - HYPOTENSION [None]
  - RED BLOOD CELL COUNT DECREASED [None]
